FAERS Safety Report 9529964 (Version 1)
Quarter: 2013Q3

REPORT INFORMATION
  Report Type: Spontaneous
  Country: US (occurrence: US)
  Receive Date: 20130917
  Receipt Date: 20130917
  Transmission Date: 20140515
  Serious: Yes (Death)
  Sender: FDA-Public Use
  Company Number: US-ENDO PHARMACEUTICALS INC.-OPIR20130017

PATIENT
  Age: 8 Month
  Sex: Male

DRUGS (3)
  1. OPANA [Suspect]
     Indication: EXPOSURE DURING BREAST FEEDING
     Dosage: UNKNOWN
     Route: 063
     Dates: start: 201209
  2. METHADONE [Suspect]
     Indication: EXPOSURE DURING BREAST FEEDING
     Dosage: UNKNOWN
     Route: 063
     Dates: start: 201209
  3. XANAX [Suspect]
     Indication: EXPOSURE DURING BREAST FEEDING
     Dosage: UNKNOWN
     Route: 063
     Dates: start: 201209

REACTIONS (2)
  - Exposure during breast feeding [Fatal]
  - Overdose [Fatal]
